FAERS Safety Report 7731906-3 (Version None)
Quarter: 2011Q3

REPORT INFORMATION
  Report Type: 
  Country: None (occurrence: None)
  Receive Date: 20110906
  Receipt Date: 20110826
  Transmission Date: 20111222
  Serious: Yes (Other)
  Sender: FDA-Public Use
  Company Number: US-BAYER-2011-007239

PATIENT
  Age: 32 Year
  Sex: Female
  Weight: 81.633 kg

DRUGS (9)
  1. KEFLEX [Concomitant]
     Dosage: UNK
     Dates: start: 19920101
  2. DROSPIRENONE AND ETHINYL ESTRADIOL [Suspect]
     Dosage: UNK
     Dates: start: 20090312, end: 20090509
  3. PREFERA OB [Concomitant]
  4. PROVENTIL [Concomitant]
     Dosage: UNK
     Dates: start: 19920101
  5. IBUPROFEN [Concomitant]
  6. TERBINAFINE HCL [Concomitant]
  7. TRIAMCINOLONE [Concomitant]
  8. ZITHROMAX [Concomitant]
     Dosage: UNK
     Dates: start: 19920101
  9. FLUCONAZOLE [Concomitant]

REACTIONS (2)
  - PAIN [None]
  - CHOLELITHIASIS [None]
